FAERS Safety Report 7751865-7 (Version None)
Quarter: 2011Q3

REPORT INFORMATION
  Report Type: 
  Country: None (occurrence: None)
  Receive Date: 20110914
  Receipt Date: 20110914
  Transmission Date: 20111222
  Serious: Yes (Life-Threatening, Hospitalization)
  Sender: FDA-Public Use
  Company Number: None

PATIENT
  Age: 65 Year
  Sex: Male

DRUGS (1)
  1. INFLIXIMAB [Suspect]
     Dosage: 900 MG ONCE IV
     Route: 042
     Dates: start: 20110720, end: 20110720

REACTIONS (2)
  - HYPOTENSION [None]
  - ANXIETY [None]
